FAERS Safety Report 4281109-2 (Version None)
Quarter: 2004Q1

REPORT INFORMATION
  Report Type: 
  Country: None (occurrence: None)
  Receive Date: 20040108
  Receipt Date: 20030116
  Transmission Date: 20041129
  Serious: Yes (Other)
  Sender: FDA-Public Use
  Company Number: HQ6234817JAN2003

PATIENT
  Age: 68 Year
  Sex: Female
  Weight: 90.8 kg

DRUGS (2)
  1. PREMPRO [Suspect]
     Indication: HORMONE REPLACEMENT THERAPY
     Dosage: 0.625/2.5MG, DAILY, ORAL
     Route: 048
     Dates: start: 19900101
  2. THYROID TAB [Concomitant]

REACTIONS (1)
  - BREAST CANCER FEMALE [None]
